FAERS Safety Report 23642481 (Version 1)
Quarter: 2024Q1

REPORT INFORMATION
  Report Type: Spontaneous
  Country: SE (occurrence: SE)
  Receive Date: 20240318
  Receipt Date: 20240318
  Transmission Date: 20240410
  Serious: Yes (Other)
  Sender: FDA-Public Use
  Company Number: None

PATIENT
  Age: 19 Year
  Sex: Male

DRUGS (1)
  1. ISOTRETINOIN [Suspect]
     Active Substance: ISOTRETINOIN
     Indication: Acne
     Dosage: ISOTRETINOIN ACTAVIS
     Route: 048

REACTIONS (10)
  - Vasculitis [Unknown]
  - Back pain [Unknown]
  - Penile ulceration [Unknown]
  - Neck pain [Unknown]
  - Dry skin [Unknown]
  - Dermatitis [Unknown]
  - Chapped lips [Unknown]
  - Palpitations [Unknown]
  - Intestinal haemorrhage [Not Recovered/Not Resolved]
  - Anxiety [Unknown]

NARRATIVE: CASE EVENT DATE: 20230505
